FAERS Safety Report 9009268 (Version 2)
Quarter: 2013Q1

REPORT INFORMATION
  Report Type: Spontaneous
  Country: US (occurrence: US)
  Receive Date: 20130111
  Receipt Date: 20130301
  Transmission Date: 20140127
  Serious: Yes (Death)
  Sender: FDA-Public Use
  Company Number: US-GLAXOSMITHKLINE-A1008072A

PATIENT
  Age: 64 Year
  Sex: Female

DRUGS (9)
  1. TYKERB [Suspect]
     Indication: PRODUCT USED FOR UNKNOWN INDICATION
     Dosage: 250MG UNKNOWN
     Route: 065
  2. AFINITOR [Suspect]
     Indication: PRODUCT USED FOR UNKNOWN INDICATION
     Dosage: 7.5MG PER DAY
     Route: 048
  3. CYMBALTA [Concomitant]
  4. KLONOPIN [Concomitant]
  5. ZOCOR [Concomitant]
  6. AMLODIPINE [Concomitant]
  7. ALLEGRA-D [Concomitant]
  8. GABAPENTIN [Concomitant]
  9. NEXIUM [Concomitant]

REACTIONS (1)
  - Breast cancer [Fatal]
